FAERS Safety Report 10098852 (Version 1)
Quarter: 2014Q2

REPORT INFORMATION
  Report Type: Spontaneous
  Country: US (occurrence: US)
  Receive Date: 20140423
  Receipt Date: 20140423
  Transmission Date: 20141212
  Serious: Yes (Hospitalization, Other)
  Sender: FDA-Public Use
  Company Number: US-ACTAVIS-2014-07722

PATIENT
  Age: 1 Year
  Sex: Female
  Weight: 9 kg

DRUGS (1)
  1. LAMOTRIGINE (WATSON LABORATORIES) [Suspect]
     Indication: ACCIDENTAL EXPOSURE TO PRODUCT BY CHILD
     Dosage: UNK
     Route: 048

REACTIONS (5)
  - Serotonin syndrome [Unknown]
  - Crying [Unknown]
  - Nausea [Unknown]
  - Toxicity to various agents [Unknown]
  - Accidental exposure to product by child [Unknown]
